FAERS Safety Report 4425923-9 (Version None)
Quarter: 2004Q3

REPORT INFORMATION
  Report Type: 
  Country: None (occurrence: None)
  Receive Date: 20040810
  Receipt Date: 20040802
  Transmission Date: 20050211
  Serious: Yes (Hospitalization)
  Sender: FDA-Public Use
  Company Number: M2002.1885/PHBS2002GB09110

PATIENT
  Age: 31 Year
  Sex: Female

DRUGS (2)
  1. RIMACTANE [Suspect]
     Indication: TUBERCULOID LEPROSY
     Dosage: 600 MG QMO
  2. PREDNISOLONE [Concomitant]

REACTIONS (8)
  - ABSCESS [None]
  - ANAEMIA [None]
  - ANURIA [None]
  - DIARRHOEA [None]
  - DUODENAL ULCER PERFORATION [None]
  - HAEMOLYSIS [None]
  - RENAL FAILURE ACUTE [None]
  - VOMITING [None]
